FAERS Safety Report 4462047-9 (Version None)
Quarter: 2004Q3

REPORT INFORMATION
  Report Type: 
  Country: None (occurrence: None)
  Receive Date: 20040924
  Receipt Date: 20040913
  Transmission Date: 20050211
  Serious: Yes (Disabling)
  Sender: FDA-Public Use
  Company Number: 2004GB02180

PATIENT
  Sex: Female
  Weight: 82 kg

DRUGS (2)
  1. ZOLMITRIPTAN [Suspect]
     Indication: MIGRAINE
     Dosage: 5 MG DAILY; PO
     Route: 048
     Dates: start: 20040114, end: 20040114
  2. LOGYNON [Concomitant]

REACTIONS (2)
  - CEREBROVASCULAR ACCIDENT [None]
  - HEMIANOPIA HOMONYMOUS [None]
